FAERS Safety Report 10592838 (Version 3)
Quarter: 2014Q4

REPORT INFORMATION
  Report Type: Spontaneous
  Country: CY (occurrence: CY)
  Receive Date: 20141119
  Receipt Date: 20141223
  Transmission Date: 20150529
  Serious: Yes (Life-Threatening, Hospitalization, Other)
  Sender: FDA-Public Use
  Company Number: CY-AMGEN-CYPSP2014089076

PATIENT
  Age: 50 Year
  Sex: Male
  Weight: 72 kg

DRUGS (4)
  1. METHOTREXATE [Concomitant]
     Active Substance: METHOTREXATE
     Indication: OSTEOARTHRITIS
     Dosage: 4X2.5MG / WEEKLY
     Route: 048
     Dates: start: 20081125
  2. ENBREL [Suspect]
     Active Substance: ETANERCEPT
     Indication: ANKYLOSING SPONDYLITIS
     Dosage: 50 MG, QWK
     Route: 058
     Dates: start: 20081125, end: 20141012
  3. FOLIC ACID. [Concomitant]
     Active Substance: FOLIC ACID
     Dosage: UNK
     Route: 048
  4. METHOTREXATE [Concomitant]
     Active Substance: METHOTREXATE
     Indication: OSTEOARTHRITIS

REACTIONS (3)
  - Polyneuropathy [Recovering/Resolving]
  - Neuropathy peripheral [Recovering/Resolving]
  - Guillain-Barre syndrome [Recovering/Resolving]

NARRATIVE: CASE EVENT DATE: 20141018
